FAERS Safety Report 6071362-7 (Version None)
Quarter: 2009Q1

REPORT INFORMATION
  Report Type: 
  Country: None (occurrence: None)
  Receive Date: 20090204
  Receipt Date: 20090123
  Transmission Date: 20090719
  Serious: Yes (Other)
  Sender: FDA-Public Use
  Company Number: PAR_02812_2009

PATIENT
  Age: 2 Month
  Sex: Female

DRUGS (1)
  1. ZOLPIDEM [Suspect]
     Indication: DRUG USE FOR UNKNOWN INDICATION
     Dosage: 10 MG 1X ORAL
     Route: 048

REACTIONS (5)
  - AGITATION [None]
  - MENTAL STATUS CHANGES [None]
  - SELF-MEDICATION [None]
  - SINUS TACHYCARDIA [None]
  - VITAL FUNCTIONS ABNORMAL [None]
